FAERS Safety Report 23803646 (Version 7)
Quarter: 2024Q3

REPORT INFORMATION
  Report Type: Report from Study
  Country: CA (occurrence: CA)
  Receive Date: 20240501
  Receipt Date: 20240917
  Transmission Date: 20241017
  Serious: Yes (Hospitalization, Other)
  Sender: CURRAX PHARMACEUTICALS
  Company Number: CA-BAUSCH-BL-2024-003606

PATIENT
  Sex: Female

DRUGS (13)
  1. CONTRAVE [Suspect]
     Active Substance: BUPROPION HYDROCHLORIDE\NALTREXONE HYDROCHLORIDE
     Indication: Weight control
     Dosage: 90/8 MG
     Route: 048
     Dates: start: 20240131, end: 20240220
  2. CONTRAVE [Suspect]
     Active Substance: BUPROPION HYDROCHLORIDE\NALTREXONE HYDROCHLORIDE
     Dosage: 90/8 MG, 2 PILLS BID
     Route: 048
     Dates: start: 20240221, end: 20240228
  3. CONTRAVE [Suspect]
     Active Substance: BUPROPION HYDROCHLORIDE\NALTREXONE HYDROCHLORIDE
     Dosage: 90/8 MG, 2 PILLS BID
     Route: 048
     Dates: start: 202403, end: 20240701
  4. ACTEMRA [Suspect]
     Active Substance: TOCILIZUMAB
     Indication: Arthritis
     Dosage: 162MG/0.9ML
     Route: 065
     Dates: start: 2024, end: 2024
  5. ENBREL [Concomitant]
     Active Substance: ETANERCEPT
     Indication: Arthritis
     Dosage: 50 MG/ML (0.98 ML)
  6. ETANERCEPT [Concomitant]
     Active Substance: ETANERCEPT
     Indication: Arthritis
     Dosage: 50 MG/ML (0.98 ML)
  7. METHOTREXATE [Concomitant]
     Active Substance: METHOTREXATE
     Indication: Arthritis
     Dosage: 20MG/0.4 ML (50 MG/ML)
  8. PREDNISONE [Concomitant]
     Active Substance: PREDNISONE
     Indication: Arthritis
     Dosage: 5 MG
  9. FOLIC ACID [Concomitant]
     Active Substance: FOLIC ACID
     Indication: Arthritis
     Dosage: 5 MG
  10. PREGABALIN [Concomitant]
     Active Substance: PREGABALIN
     Indication: Arthritis
     Dosage: 75 MG
  11. HYDROCHLOROTHIAZIDE\TELMISARTAN [Concomitant]
     Active Substance: HYDROCHLOROTHIAZIDE\TELMISARTAN
     Indication: Hypertension
     Dosage: 80MG/12.5 MG
  12. LANSOPRAZOLE [Concomitant]
     Active Substance: LANSOPRAZOLE
     Indication: Gastrooesophageal reflux disease
     Dosage: 30 MG
  13. AMOXICILLIN\CLAVULANATE POTASSIUM [Concomitant]
     Active Substance: AMOXICILLIN\CLAVULANATE POTASSIUM
     Indication: Infection
     Dosage: 875-125MG

REACTIONS (8)
  - Rheumatoid arthritis [Recovered/Resolved]
  - Beta haemolytic streptococcal infection [Recovered/Resolved]
  - Sleep disorder [Recovered/Resolved]
  - Pyrexia [Recovered/Resolved]
  - Cough [Recovered/Resolved]
  - Dry mouth [Recovered/Resolved]
  - Headache [Recovered/Resolved]
  - Therapy interrupted [Unknown]

NARRATIVE: CASE EVENT DATE: 20240101
